FAERS Safety Report 19767163 (Version 1)
Quarter: 2021Q3

REPORT INFORMATION
  Report Type: Spontaneous
  Country: US (occurrence: US)
  Receive Date: 20210830
  Receipt Date: 20210830
  Transmission Date: 20211014
  Serious: Yes (Hospitalization, Other)
  Sender: FDA-Public Use
  Company Number: None

PATIENT
  Age: 63 Year
  Sex: Female
  Weight: 72 kg

DRUGS (4)
  1. ZINC. [Concomitant]
     Active Substance: ZINC
  2. NP THYROID [Suspect]
     Active Substance: LEVOTHYROXINE\LIOTHYRONINE
     Indication: HYPOTHYROIDISM
     Dosage: ?          QUANTITY:1.5 TABLET(S);?
     Route: 048
     Dates: start: 20210822, end: 20210825
  3. PROGESTERONE CREAM [Concomitant]
     Active Substance: PROGESTERONE
  4. VITAMINS B?13, D3, C [Concomitant]

REACTIONS (4)
  - Heart rate abnormal [None]
  - Blood pressure increased [None]
  - Fatigue [None]
  - Headache [None]

NARRATIVE: CASE EVENT DATE: 20210822
